FAERS Safety Report 5103011-6 (Version None)
Quarter: 2006Q3

REPORT INFORMATION
  Report Type: 
  Country: None (occurrence: None)
  Receive Date: 20060908
  Receipt Date: 20060829
  Transmission Date: 20061208
  Serious: Yes (Other)
  Sender: FDA-Public Use
  Company Number: B0437003A

PATIENT
  Sex: 0

DRUGS (2)
  1. DIGOXIN [Suspect]
  2. JOSAMYCIN (JOSAMYCIN) [Suspect]

REACTIONS (3)
  - CARDIAC FAILURE [None]
  - CARDIOACTIVE DRUG LEVEL INCREASED [None]
  - SINOATRIAL BLOCK [None]
